FAERS Safety Report 8990314 (Version 2)
Quarter: 2013Q1

REPORT INFORMATION
  Report Type: Report from Study
  Country: US (occurrence: US)
  Receive Date: 20121228
  Receipt Date: 20130104
  Transmission Date: 20140127
  Serious: Yes (Hospitalization, Other)
  Sender: FDA-Public Use
  Company Number: US-ABBOTT-12P-163-1024240-00

PATIENT
  Age: 60 Year
  Sex: Female

DRUGS (6)
  1. HUMIRA [Suspect]
     Indication: PSORIASIS
     Dates: start: 20120728, end: 20120728
  2. HUMIRA [Suspect]
     Dates: start: 20120804, end: 20120804
  3. HUMIRA [Suspect]
     Dates: start: 20120818
  4. MORPHINE [Concomitant]
     Indication: PAIN
  5. DILAUDID [Concomitant]
     Indication: PAIN
  6. ESTRATE [Concomitant]
     Indication: HORMONE REPLACEMENT THERAPY

REACTIONS (4)
  - Faeces discoloured [Recovered/Resolved]
  - Haematochezia [Recovered/Resolved]
  - Adrenal disorder [Recovered/Resolved]
  - Chest pain [Recovered/Resolved]
